FAERS Safety Report 19990974 (Version 1)
Quarter: 2021Q4

REPORT INFORMATION
  Report Type: Spontaneous
  Country: US (occurrence: US)
  Receive Date: 20211025
  Receipt Date: 20211025
  Transmission Date: 20220303
  Serious: Yes (Other)
  Sender: FDA-Public Use
  Company Number: None

PATIENT
  Age: 52 Year
  Sex: Male

DRUGS (8)
  1. HUMIRA [Suspect]
     Active Substance: ADALIMUMAB
     Indication: Rheumatoid arthritis
     Dosage: ?          OTHER FREQUENCY:EVERY OTHER WEEK;
     Route: 058
  2. METHOTREXATE [Concomitant]
     Active Substance: METHOTREXATE
  3. FLOVENT DISKUS [Concomitant]
     Active Substance: FLUTICASONE PROPIONATE
  4. TUMS [Concomitant]
     Active Substance: CALCIUM CARBONATE
  5. OMEPRAZOLE [Concomitant]
     Active Substance: OMEPRAZOLE
  6. ATORVASTATIN [Concomitant]
     Active Substance: ATORVASTATIN
  7. TRAMADOL [Concomitant]
     Active Substance: TRAMADOL
  8. INDOMETHACIN [Concomitant]
     Active Substance: INDOMETHACIN

REACTIONS (2)
  - Fatigue [None]
  - Pain [None]

NARRATIVE: CASE EVENT DATE: 20211011
